FAERS Safety Report 5454058-1 (Version None)
Quarter: 2007Q3

REPORT INFORMATION
  Report Type: 
  Country: None (occurrence: None)
  Receive Date: 20070917
  Receipt Date: 20070817
  Transmission Date: 20080115
  Serious: Yes (Other)
  Sender: FDA-Public Use
  Company Number: US-ROCHE-513193

PATIENT
  Sex: Male
  Weight: 2.2 kg

DRUGS (9)
  1. FUZEON [Suspect]
     Indication: DRUG USE FOR UNKNOWN INDICATION
  2. ABACAVIR [Suspect]
     Indication: DRUG USE FOR UNKNOWN INDICATION
  3. RITONAVIR [Suspect]
     Indication: DRUG USE FOR UNKNOWN INDICATION
  4. LEXIVA [Suspect]
     Indication: DRUG USE FOR UNKNOWN INDICATION
  5. D4T [Suspect]
     Indication: DRUG USE FOR UNKNOWN INDICATION
  6. AZT [Suspect]
     Indication: DRUG USE FOR UNKNOWN INDICATION
  7. 3TC [Suspect]
     Indication: DRUG USE FOR UNKNOWN INDICATION
  8. LOPINAVIR [Suspect]
     Indication: DRUG USE FOR UNKNOWN INDICATION
  9. 1 CONCOMITANT DRUG [Suspect]
     Indication: DRUG USE FOR UNKNOWN INDICATION
     Dosage: DRUG NAME: DDL

REACTIONS (3)
  - CYTOMEGALOVIRUS INFECTION [None]
  - PREMATURE BABY [None]
  - RETINITIS [None]
